FAERS Safety Report 24582408 (Version 3)
Quarter: 2024Q4

REPORT INFORMATION
  Report Type: Spontaneous
  Country: JP (occurrence: JP)
  Receive Date: 20241106
  Receipt Date: 20241208
  Transmission Date: 20250115
  Serious: Yes (Other)
  Sender: ARDELYX
  Company Number: JP-ARDELYX-2024ARDX007988

PATIENT
  Age: 6 Decade
  Sex: Female

DRUGS (1)
  1. TENAPANOR HYDROCHLORIDE [Suspect]
     Active Substance: TENAPANOR HYDROCHLORIDE
     Indication: Blood phosphorus increased
     Dosage: 5 MILLIGRAM, BID
     Route: 048
     Dates: start: 20240401

REACTIONS (2)
  - Hyperkalaemia [Unknown]
  - Hyperphagia [Unknown]
